FAERS Safety Report 21626122 (Version 2)
Quarter: 2023Q1

REPORT INFORMATION
  Report Type: Spontaneous
  Country: US (occurrence: US)
  Receive Date: 20221122
  Receipt Date: 20230202
  Transmission Date: 20230418
  Serious: No
  Sender: FDA-Public Use
  Company Number: US-BIOGEN-2022BI01156583

PATIENT
  Age: 73 Year
  Sex: Female

DRUGS (19)
  1. VUMERITY [Suspect]
     Active Substance: DIROXIMEL FUMARATE
     Indication: Multiple sclerosis
     Route: 050
     Dates: start: 20210201
  2. VALACYCLOVIR HYDROCHLORIDE [Concomitant]
     Active Substance: VALACYCLOVIR HYDROCHLORIDE
     Route: 050
  3. NORCO [Concomitant]
     Active Substance: ACETAMINOPHEN\HYDROCODONE BITARTRATE
     Route: 050
  4. MODAFINIL [Concomitant]
     Active Substance: MODAFINIL
     Route: 050
  5. SERTRALINE HYDROCHLORIDE [Concomitant]
     Active Substance: SERTRALINE HYDROCHLORIDE
     Route: 050
  6. VITAMIN C [Concomitant]
     Active Substance: ASCORBIC ACID
     Route: 050
  7. BACLOFEN [Concomitant]
     Active Substance: BACLOFEN
     Route: 050
  8. PREGABALIN [Concomitant]
     Active Substance: PREGABALIN
     Route: 050
  9. ALLEGRA [Concomitant]
     Active Substance: FEXOFENADINE HYDROCHLORIDE
     Route: 050
  10. LEVOCETIRIZINE DIHYDROCHLORIDE [Concomitant]
     Active Substance: LEVOCETIRIZINE DIHYDROCHLORIDE
     Route: 050
  11. ASPIRIN [Concomitant]
     Active Substance: ASPIRIN
     Route: 050
  12. CALCIUM [Concomitant]
     Active Substance: CALCIUM
     Route: 050
  13. VITAMIN D3 [Concomitant]
     Active Substance: CHOLECALCIFEROL
     Route: 050
  14. MAGNESIUM [Concomitant]
     Active Substance: MAGNESIUM
     Route: 050
  15. LUTEIN [Concomitant]
     Active Substance: LUTEIN
     Route: 050
  16. MELATIN [Concomitant]
     Route: 050
  17. OMEPRAZOLE [Concomitant]
     Active Substance: OMEPRAZOLE
     Route: 050
  18. HYDROCODONE BITARTRATE ER [Concomitant]
     Route: 050
  19. FORTEO [Concomitant]
     Active Substance: TERIPARATIDE
     Route: 050

REACTIONS (3)
  - Osteoporosis [Unknown]
  - Procedural pain [Unknown]
  - Mobility decreased [Unknown]

NARRATIVE: CASE EVENT DATE: 20220301
